FAERS Safety Report 6014704-0 (Version None)
Quarter: 2008Q4

REPORT INFORMATION
  Report Type: 
  Country: None (occurrence: None)
  Receive Date: 20081219
  Receipt Date: 20081217
  Transmission Date: 20090506
  Serious: Yes (Hospitalization, Other)
  Sender: FDA-Public Use
  Company Number: US-ASTRAZENECA-2008UW17707

PATIENT
  Age: 306 Month
  Sex: Female
  Weight: 117.9 kg

DRUGS (19)
  1. SEROQUEL [Suspect]
     Indication: BIPOLAR DISORDER
     Dosage: 100-200MG
     Route: 048
     Dates: start: 19960901
  2. SEROQUEL [Suspect]
     Indication: DEPRESSION
     Dosage: 100-200MG
     Route: 048
     Dates: start: 19960901
  3. SEROQUEL [Suspect]
     Indication: ANXIETY
     Dosage: 100-200MG
     Route: 048
     Dates: start: 19960901
  4. SEROQUEL [Suspect]
     Indication: SCHIZOPHRENIA
     Dosage: 100-200MG
     Route: 048
     Dates: start: 19960901
  5. SEROQUEL [Suspect]
     Dosage: 100-200MG
     Route: 048
     Dates: start: 20000101, end: 20070101
  6. SEROQUEL [Suspect]
     Dosage: 100-200MG
     Route: 048
     Dates: start: 20000101, end: 20070101
  7. SEROQUEL [Suspect]
     Dosage: 100-200MG
     Route: 048
     Dates: start: 20000101, end: 20070101
  8. SEROQUEL [Suspect]
     Dosage: 100-200MG
     Route: 048
     Dates: start: 20000101, end: 20070101
  9. DEXATRIM [Concomitant]
     Dates: start: 19910101
  10. CLONAZEPAM [Concomitant]
     Dates: start: 20050901
  11. CLONAZEPAM [Concomitant]
     Dates: start: 20080401
  12. ALPRAZOLAM [Concomitant]
     Dates: start: 20051001
  13. ABILIFY [Concomitant]
     Dates: start: 20031201
  14. ABILIFY [Concomitant]
     Dates: start: 20040701
  15. EFFEXOR [Concomitant]
     Dates: start: 20031201
  16. EFFEXOR [Concomitant]
     Dates: start: 20040701
  17. LORAZEPAM [Concomitant]
     Dates: start: 20010601
  18. ZOLOFT [Concomitant]
     Dates: start: 20030501
  19. BUPROPION HCL [Concomitant]
     Dates: start: 20070501

REACTIONS (12)
  - BACK PAIN [None]
  - CARPAL TUNNEL SYNDROME [None]
  - DIABETES MELLITUS [None]
  - DIABETIC COMA [None]
  - DRUG INTERACTION [None]
  - EYE DISORDER [None]
  - EYE EXCISION [None]
  - EYE SWELLING [None]
  - GLAUCOMA [None]
  - INFECTION [None]
  - PAIN [None]
  - PREGNANCY [None]
